FAERS Safety Report 19614886 (Version 7)
Quarter: 2021Q4

REPORT INFORMATION
  Report Type: Report from Study
  Country: US (occurrence: US)
  Receive Date: 20210727
  Receipt Date: 20211214
  Transmission Date: 20220303
  Serious: Yes (Other)
  Sender: FDA-Public Use
  Company Number: US-ORGANON-O2107USA002101

PATIENT
  Sex: Female
  Weight: 104.3 kg

DRUGS (11)
  1. IMPLANON [Suspect]
     Active Substance: ETONOGESTREL
     Indication: Endometriosis
     Dosage: 1 DOSAGE FORM
     Route: 059
     Dates: start: 20080621
  2. NEXPLANON [Suspect]
     Active Substance: ETONOGESTREL
     Indication: Endometriosis
     Dosage: IMPLANT (1 DOSAGE FORM), 6
     Route: 059
     Dates: start: 2015, end: 201807
  3. NEXPLANON [Suspect]
     Active Substance: ETONOGESTREL
     Indication: Polycystic ovaries
     Dosage: 1 IMPLANT (LEFT, NON-DOMINANT)
     Route: 059
     Dates: start: 201807, end: 20190809
  4. NEXPLANON [Suspect]
     Active Substance: ETONOGESTREL
     Indication: Endometriosis
  5. NEXPLANON [Suspect]
     Active Substance: ETONOGESTREL
     Indication: Endometriosis
     Dosage: 1 IMPLANT (LEFT, NON-DOMINANT ARM)
     Route: 059
     Dates: start: 20210809, end: 20210910
  6. VIIBRYD [Concomitant]
     Active Substance: VILAZODONE HYDROCHLORIDE
     Dosage: UNK
  7. VIIBRYD [Concomitant]
     Active Substance: VILAZODONE HYDROCHLORIDE
     Dosage: UNK
  8. QUETIAPINE [Concomitant]
     Active Substance: QUETIAPINE
     Dosage: UNK
  9. QUETIAPINE [Concomitant]
     Active Substance: QUETIAPINE
     Dosage: UNK
  10. AZELASTINE [Concomitant]
     Active Substance: AZELASTINE
     Indication: Endometriosis
     Dosage: UNK
  11. AZELASTINE [Concomitant]
     Active Substance: AZELASTINE
     Dosage: UNK

REACTIONS (12)
  - Device dislocation [Recovered/Resolved]
  - Endometriosis [Unknown]
  - Polycystic ovaries [Unknown]
  - Implant site infection [Recovering/Resolving]
  - Papilloma viral infection [Unknown]
  - Implant site pain [Recovering/Resolving]
  - Pyrexia [Recovering/Resolving]
  - Complication of device removal [Recovered/Resolved]
  - Device kink [Recovered/Resolved]
  - Therapeutic response unexpected [Unknown]
  - Product use in unapproved indication [Unknown]
  - Incorrect product administration duration [Unknown]

NARRATIVE: CASE EVENT DATE: 20150101
